FAERS Safety Report 7326803-1 (Version None)
Quarter: 2011Q1

REPORT INFORMATION
  Report Type: 
  Country: None (occurrence: None)
  Receive Date: 20110302
  Receipt Date: 20091201
  Transmission Date: 20110831
  Serious: No
  Sender: FDA-Public Use
  Company Number: US-PFIZER INC-2009304802

PATIENT
  Sex: Male
  Weight: 86 kg

DRUGS (3)
  1. CARBAMAZEPINE [Concomitant]
     Indication: CONVULSION
     Dosage: 200 MG, 4X/DAY
     Route: 048
  2. DILANTIN [Suspect]
     Indication: CONVULSION
     Dosage: 100 MG, 4X/DAY
     Route: 048
  3. LEVETIRACETAM [Suspect]
     Indication: GINGIVAL DISORDER
     Dosage: 500 MG, 3X/DAY
     Route: 048

REACTIONS (1)
  - GINGIVAL DISORDER [None]
